FAERS Safety Report 10181735 (Version 1)
Quarter: 2014Q2

REPORT INFORMATION
  Report Type: Spontaneous
  Country: US (occurrence: US)
  Receive Date: 20140519
  Receipt Date: 20140519
  Transmission Date: 20141212
  Serious: No
  Sender: FDA-Public Use
  Company Number: US-BANPHARM-20131853

PATIENT
  Age: 45 Year
  Sex: Female
  Weight: 50.8 kg

DRUGS (5)
  1. IBUPROFEN CAPSULES 200 MG [Suspect]
     Indication: PAIN
     Dosage: 2 DF, ONCE,
     Route: 048
     Dates: start: 20131012, end: 20131012
  2. METOPROLOL [Concomitant]
  3. XANAX [Concomitant]
  4. OXYCODONE [Concomitant]
  5. CLARITIN [Concomitant]

REACTIONS (2)
  - Oral discomfort [Recovered/Resolved]
  - Dysgeusia [Recovered/Resolved]
